FAERS Safety Report 4277849-1 (Version None)
Quarter: 2004Q1

REPORT INFORMATION
  Report Type: 
  Country: None (occurrence: None)
  Receive Date: 20040121
  Receipt Date: 20030904
  Transmission Date: 20041129
  Serious: Yes (Death)
  Sender: FDA-Public Use
  Company Number: 2003-07-2751

PATIENT
  Sex: Male

DRUGS (3)
  1. SUBUTEX [Suspect]
  2. BENZODIAZEPINE [Suspect]
  3. ALCOHOL [Suspect]

REACTIONS (1)
  - MYOCARDIAL INFARCTION [None]
